FAERS Safety Report 4839922-6 (Version None)
Quarter: 2005Q4

REPORT INFORMATION
  Report Type: 
  Country: None (occurrence: None)
  Receive Date: 20051125
  Receipt Date: 20051117
  Transmission Date: 20060501
  Serious: Yes (Other)
  Sender: FDA-Public Use
  Company Number: 219643

PATIENT
  Sex: Female

DRUGS (5)
  1. MABTHERA                         (RITUXIMAB) [Suspect]
     Indication: LYMPHOMA
  2. CYCLOPHOSPHAMIDE [Suspect]
     Indication: LYMPHOMA
  3. DOXORUBICIN HCL [Suspect]
     Indication: LYMPHOMA
  4. VINCRISTINE [Suspect]
     Indication: LYMPHOMA
  5. PREDNISONE [Suspect]
     Indication: LYMPHOMA

REACTIONS (1)
  - GUILLAIN-BARRE SYNDROME [None]
